FAERS Safety Report 8893180 (Version 1)
Quarter: 2012Q4

REPORT INFORMATION
  Report Type: Spontaneous
  Country: US (occurrence: None)
  Receive Date: 20121031
  Receipt Date: 20121031
  Transmission Date: 20130627
  Serious: Yes (Death)
  Sender: FDA-Public Use
  Company Number: 2012MA012493

PATIENT
  Age: 56 Year
  Sex: Female

DRUGS (7)
  1. LEVETIRACETAM [Suspect]
     Indication: CONVULSION PROPHYLAXIS
  2. DIAZEPAM [Concomitant]
  3. MEPERIDINE [Concomitant]
  4. MEPROBAMATE [Concomitant]
  5. NORDIAZEPAM [Concomitant]
  6. NORMEPERIDINE [Concomitant]
  7. TRAZADONE [Concomitant]

REACTIONS (1)
  - Toxicity to various agents [None]
